FAERS Safety Report 9602772 (Version 1)
Quarter: 2013Q4

REPORT INFORMATION
  Report Type: Spontaneous
  Country: CN (occurrence: None)
  Receive Date: 20131003
  Receipt Date: 20131003
  Transmission Date: 20140711
  Serious: Yes (Death, Life-Threatening, Hospitalization)
  Sender: FDA-Public Use
  Company Number: CN-JNJFOC-20100206583

PATIENT
  Age: 35 Year
  Sex: Female
  Weight: 56 kg

DRUGS (4)
  1. DECITABINE (DECITABINE) LYOPHILIZED POWDER [Suspect]
     Indication: MYELODYSPLASTIC SYNDROME
     Dosage: 1 IN 1 DAY
     Route: 042
     Dates: start: 20100126, end: 20100130
  2. IMIPENEM (IMIPENEM) UNSPECIFIED [Concomitant]
  3. HEPARIN (HEPARIN) INJECTION [Concomitant]
  4. GRANULOCYTE COLONY-STIMULATING FACTOR NOS [Concomitant]

REACTIONS (2)
  - Pancytopenia [None]
  - Febrile neutropenia [None]
